FAERS Safety Report 6447369-4 (Version None)
Quarter: 2009Q4

REPORT INFORMATION
  Report Type: 
  Country: None (occurrence: None)
  Receive Date: 20091119
  Receipt Date: 20091109
  Transmission Date: 20100525
  Serious: Yes (Hospitalization)
  Sender: FDA-Public Use
  Company Number: FR-ELI_LILLY_AND_COMPANY-FR200906006951

PATIENT
  Sex: Male
  Weight: 51 kg

DRUGS (3)
  1. UMATROPE [Suspect]
     Indication: GROWTH HORMONE DEFICIENCY
     Dosage: 0.023 MG/KG, DAILY (1/D) 11MG DAILY
     Route: 058
     Dates: start: 20060301
  2. LEVOTHYROXINE SODIUM [Concomitant]
     Indication: CONGENITAL HYPOTHYROIDISM
     Dosage: 75 UG, DAILY (1/D)
     Route: 048
     Dates: start: 19950101
  3. ENANTONE /00726901/ [Concomitant]
     Indication: PRECOCIOUS PUBERTY
     Dosage: 11.3 MG, EVERY 12 WEEKS
     Route: 058
     Dates: start: 20070301

REACTIONS (1)
  - OSTEOMYELITIS [None]
